FAERS Safety Report 5369971-3 (Version None)
Quarter: 2007Q2

REPORT INFORMATION
  Report Type: 
  Country: None (occurrence: None)
  Receive Date: 20070626
  Receipt Date: 20070621
  Transmission Date: 20071010
  Serious: Yes (Death, Other)
  Sender: FDA-Public Use
  Company Number: PHMT2007CA01180

PATIENT
  Age: 52 Year
  Sex: Male

DRUGS (8)
  1. CLOZARIL [Suspect]
     Indication: SCHIZOPHRENIA
     Dosage: UNK, UNK
     Route: 048
     Dates: start: 19920101
  2. CLOZARIL [Suspect]
     Dosage: 700 MG DAILY , REDUCED GRADUALLY TO 350 MG
     Route: 048
     Dates: start: 20020401
  3. CLOZARIL [Suspect]
     Dosage: 150 MG QHS
     Route: 048
     Dates: start: 20060101
  4. CLOZARIL [Suspect]
     Dosage: 200 MG DAILY
     Route: 048
     Dates: start: 20050101
  5. RISPERDAL [Concomitant]
     Dosage: 2 MG, TID
     Dates: start: 20050901
  6. RITALIN [Concomitant]
     Dosage: 40 MG DAILY
     Route: 048
     Dates: start: 20030901, end: 20051001
  7. DESYREL [Concomitant]
     Dosage: 50 MG QHS
  8. KEMADRIN [Concomitant]
     Dosage: 5 MG, BID
     Dates: start: 20060101

REACTIONS (5)
  - CHEST PAIN [None]
  - DYSPNOEA [None]
  - MYOCARDIAL INFARCTION [None]
  - SLEEP APNOEA SYNDROME [None]
  - SOMNOLENCE [None]
